FAERS Safety Report 8814563 (Version 2)
Quarter: 2012Q4

REPORT INFORMATION
  Report Type: 
  Country: US (occurrence: US)
  Receive Date: 20120928
  Receipt Date: 20121022
  Transmission Date: 20130627
  Serious: Yes (Death)
  Sender: FDA-Public Use
  Company Number: US-ASTELLAS-2012US008106

PATIENT
  Age: 65 Year
  Sex: Male
  Weight: 67 kg

DRUGS (1)
  1. TARCEVA [Suspect]
     Indication: LUNG NEOPLASM MALIGNANT
     Dosage: 150 mg, UID/QD
     Route: 048
     Dates: start: 20120730, end: 20120804

REACTIONS (6)
  - Multi-organ failure [Fatal]
  - Respiratory failure [Fatal]
  - Lung neoplasm malignant [Fatal]
  - Rash [Recovered/Resolved]
  - Cheilitis [Recovered/Resolved]
  - Mucosal inflammation [Recovered/Resolved]
